FAERS Safety Report 4917205-3 (Version None)
Quarter: 2006Q1

REPORT INFORMATION
  Report Type: 
  Country: None (occurrence: None)
  Receive Date: 20060221
  Receipt Date: 20060210
  Transmission Date: 20060701
  Serious: Yes (Life-Threatening, Other)
  Sender: FDA-Public Use
  Company Number: JP-JNJFOC-20051005993

PATIENT
  Sex: Female
  Weight: 60 kg

DRUGS (13)
  1. REMICADE [Suspect]
     Dosage: PATIENT RECIEVED A TOTAL OF FOUR INFUSIONS.
     Route: 042
  2. REMICADE [Suspect]
     Route: 042
  3. REMICADE [Suspect]
     Route: 042
  4. REMICADE [Suspect]
     Indication: RHEUMATOID ARTHRITIS
     Route: 042
  5. RHEUMATREX [Suspect]
     Route: 048
  6. RHEUMATREX [Suspect]
     Indication: RHEUMATOID ARTHRITIS
     Route: 048
  7. PREDONINE [Suspect]
     Route: 048
  8. PREDONINE [Suspect]
     Indication: RHEUMATOID ARTHRITIS
     Route: 048
  9. ISCOTIN [Concomitant]
  10. ISCOTIN [Concomitant]
     Indication: PROPHYLAXIS
  11. PYDOXAL [Concomitant]
  12. AZULFIDINE EN-TABS [Concomitant]
  13. FOLIAMIN [Concomitant]

REACTIONS (8)
  - BLOOD LACTATE DEHYDROGENASE INCREASED [None]
  - CUTANEOUS VASCULITIS [None]
  - CYTOMEGALOVIRUS INFECTION [None]
  - INTERSTITIAL LUNG DISEASE [None]
  - MORPHOEA [None]
  - PANNICULITIS [None]
  - PNEUMOCYSTIS JIROVECI PNEUMONIA [None]
  - RENAL DISORDER [None]
